FAERS Safety Report 8825557 (Version 1)
Quarter: 2012Q4

REPORT INFORMATION
  Report Type: 
  Country: HR (occurrence: HR)
  Receive Date: 20121004
  Receipt Date: 20121004
  Transmission Date: 20130627
  Serious: Yes (Other)
  Sender: FDA-Public Use
  Company Number: HR-ABBOTT-12P-216-0990670-00

PATIENT
  Age: 45 Year
  Sex: Male

DRUGS (1)
  1. TRICOR [Suspect]
     Indication: HYPERTRIGLYCERIDAEMIA
     Route: 048

REACTIONS (2)
  - Face oedema [Recovered/Resolved]
  - Localised oedema [Recovered/Resolved]
